FAERS Safety Report 4779625-X (Version None)
Quarter: 2005Q3

REPORT INFORMATION
  Report Type: 
  Country: None (occurrence: None)
  Receive Date: 20050914
  Receipt Date: 20050201
  Transmission Date: 20060218
  Serious: Yes (Hospitalization, Other)
  Sender: FDA-Public Use
  Company Number: 163-20785-05020036

PATIENT
  Age: 65 Year
  Sex: Female
  Weight: 63.05 kg

DRUGS (6)
  1. THALOMID [Suspect]
     Indication: METASTASES TO CENTRAL NERVOUS SYSTEM
     Dosage: 200 INCREASED TO 600MG, QHS, ORAL
     Route: 048
     Dates: start: 20041202, end: 20050126
  2. THALOMID [Suspect]
     Indication: NON-SMALL CELL LUNG CANCER
     Dosage: 200 INCREASED TO 600MG, QHS, ORAL
     Route: 048
     Dates: start: 20041202, end: 20050126
  3. TEMODAR [Suspect]
     Indication: METASTASES TO CENTRAL NERVOUS SYSTEM
     Dosage: 120 MG, QD (TIMES 21 DAYS)
     Dates: start: 20041208, end: 20041228
  4. TEMODAR [Suspect]
     Indication: NON-SMALL CELL LUNG CANCER
     Dosage: 120 MG, QD (TIMES 21 DAYS)
     Dates: start: 20041208, end: 20041228
  5. RADIATION THERAPY [Suspect]
     Indication: METASTASES TO CENTRAL NERVOUS SYSTEM
  6. RADIATION THERAPY [Suspect]
     Indication: NON-SMALL CELL LUNG CANCER

REACTIONS (9)
  - ASTHENIA [None]
  - BRADYPHRENIA [None]
  - CHILLS [None]
  - CONFUSIONAL STATE [None]
  - DEHYDRATION [None]
  - DYSPNOEA [None]
  - PULMONARY EMBOLISM [None]
  - PYREXIA [None]
  - URINARY TRACT INFECTION [None]
